FAERS Safety Report 5179518-2 (Version None)
Quarter: 2006Q4

REPORT INFORMATION
  Report Type: 
  Country: None (occurrence: None)
  Receive Date: 20061211
  Receipt Date: 20061124
  Transmission Date: 20070319
  Serious: Yes (Hospitalization)
  Sender: FDA-Public Use
  Company Number: DSA_29052_2006

PATIENT
  Age: 80 Year
  Sex: Female

DRUGS (12)
  1. ENALAPRIL MALEATE [Suspect]
     Indication: HYPERTENSION
     Dosage: 20 MG QD PO
     Route: 048
     Dates: end: 20061013
  2. FOSAMAX [Suspect]
     Indication: HYPERTENSION
     Dosage: DF QWK PO
     Route: 048
     Dates: start: 20060215, end: 20061013
  3. BUDESONIDE [Concomitant]
  4. CETIRIZINE HCL [Concomitant]
  5. FENOFIBRATE [Concomitant]
  6. RABEPRAZOLE SODIUM [Suspect]
     Dosage: 10 MG Q DAY PO
     Route: 048
     Dates: end: 20061013
  7. FERROUS SO4 [Concomitant]
  8. FLUINDIONE [Concomitant]
  9. LEVOTHYROXINE SODIUM [Concomitant]
  10. NITROGLYCERIN [Concomitant]
  11. VERAPAMIL HCL [Concomitant]
  12. ZOLPIDEM TARTRATE [Concomitant]

REACTIONS (10)
  - APLASTIC ANAEMIA [None]
  - ASTHMA [None]
  - CARDIOMYOPATHY [None]
  - CULTURE URINE POSITIVE [None]
  - ESCHERICHIA INFECTION [None]
  - GENERAL PHYSICAL HEALTH DETERIORATION [None]
  - HYPERSENSITIVITY [None]
  - HYPOTHYROIDISM [None]
  - NEPHRITIS INTERSTITIAL [None]
  - POLLAKIURIA [None]
